FAERS Safety Report 17528645 (Version 1)
Quarter: 2020Q1

REPORT INFORMATION
  Report Type: Spontaneous
  Country: BE (occurrence: BE)
  Receive Date: 20200312
  Receipt Date: 20200312
  Transmission Date: 20200409
  Serious: Yes (Hospitalization, Other)
  Sender: FDA-Public Use
  Company Number: BE-MACLEODS PHARMACEUTICALS US LTD-MAC2020024938

PATIENT

DRUGS (10)
  1. ASPIRIN. [Concomitant]
     Active Substance: ASPIRIN
     Indication: ANTIPLATELET THERAPY
     Dosage: UNK
     Route: 065
  2. ASPIRIN. [Concomitant]
     Active Substance: ASPIRIN
     Indication: CORONARY ARTERY DISSECTION
  3. PRAVASTATIN. [Concomitant]
     Active Substance: PRAVASTATIN
     Indication: PRODUCT USED FOR UNKNOWN INDICATION
     Dosage: UNK
     Route: 065
  4. PRAVASTATIN. [Concomitant]
     Active Substance: PRAVASTATIN
     Indication: CORONARY ARTERY DISSECTION
  5. TACROLIMUS. [Concomitant]
     Active Substance: TACROLIMUS
     Indication: TRANSPLANT REJECTION
     Dosage: UNK
     Route: 065
  6. MYCOPHENOLATE MOFETIL. [Concomitant]
     Active Substance: MYCOPHENOLATE MOFETIL
     Indication: TRANSPLANT REJECTION
  7. CLOPIDOGREL [Suspect]
     Active Substance: CLOPIDOGREL BISULFATE
     Indication: ANTIPLATELET THERAPY
     Dosage: UNK
     Route: 065
  8. BISOPROLOL [Concomitant]
     Active Substance: BISOPROLOL
     Indication: PRODUCT USED FOR UNKNOWN INDICATION
     Dosage: UNK, LOW DOSE
     Route: 065
  9. BISOPROLOL [Concomitant]
     Active Substance: BISOPROLOL
     Indication: CORONARY ARTERY DISSECTION
  10. CLOPIDOGREL [Suspect]
     Active Substance: CLOPIDOGREL BISULFATE
     Indication: CORONARY ARTERY DISSECTION

REACTIONS (6)
  - Coronary artery dissection [Recovered/Resolved]
  - Condition aggravated [Recovered/Resolved]
  - Ventricular tachycardia [Recovered/Resolved]
  - Left ventricular dysfunction [Recovered/Resolved]
  - Drug ineffective [Unknown]
  - Ventricular hypokinesia [Recovered/Resolved]
